FAERS Safety Report 11381853 (Version 1)
Quarter: 2015Q3

REPORT INFORMATION
  Report Type: Report from Study
  Country: US (occurrence: US)
  Receive Date: 20150814
  Receipt Date: 20150814
  Transmission Date: 20151125
  Serious: Yes (Death)
  Sender: FDA-Public Use
  Company Number: US-ASTELLAS-2015US024265

PATIENT
  Sex: Female

DRUGS (1)
  1. ERLOTINIB [Suspect]
     Active Substance: ERLOTINIB
     Indication: NASAL SINUS CANCER
     Route: 048
     Dates: start: 20070109

REACTIONS (13)
  - Asthenia [Unknown]
  - Death [Fatal]
  - Decreased appetite [Unknown]
  - Arthralgia [Unknown]
  - Nasal congestion [Unknown]
  - Insomnia [Unknown]
  - Fatigue [Unknown]
  - Sinus headache [Unknown]
  - Ageusia [Unknown]
  - Lacrimation increased [Unknown]
  - Vision blurred [Unknown]
  - Weight decreased [Unknown]
  - Off label use [Unknown]
